FAERS Safety Report 5367997-7 (Version None)
Quarter: 2007Q2

REPORT INFORMATION
  Report Type: 
  Country: None (occurrence: None)
  Receive Date: 20070622
  Receipt Date: 20070612
  Transmission Date: 20071010
  Serious: Yes (Hospitalization)
  Sender: FDA-Public Use
  Company Number: PL-PFIZER INC-2007048186

PATIENT
  Sex: Male
  Weight: 73 kg

DRUGS (13)
  1. SU-011,248 [Suspect]
     Route: 048
     Dates: start: 20060718, end: 20060814
  2. BETALOC [Concomitant]
  3. ENARENAL [Concomitant]
  4. INDAPAMIDE [Concomitant]
  5. CLEXANE [Concomitant]
  6. LACTULOSE [Concomitant]
  7. METOCLOPRAMIDE [Concomitant]
  8. DURAGESIC-100 [Concomitant]
  9. MORPHINE SULFATE [Concomitant]
  10. OMNIC [Concomitant]
  11. IMOVANE [Concomitant]
  12. ESPUMISAN [Concomitant]
  13. DOXEPIN HCL [Concomitant]

REACTIONS (2)
  - ANAEMIA [None]
  - PNEUMONIA [None]
